FAERS Safety Report 15355798 (Version 2)
Quarter: 2020Q2

REPORT INFORMATION
  Report Type: Report from Study
  Country: CA (occurrence: CA)
  Receive Date: 20180906
  Receipt Date: 20200414
  Transmission Date: 20200713
  Serious: Yes (Hospitalization, Other)
  Sender: FDA-Public Use
  Company Number: CA-EISAI MEDICAL RESEARCH-EC-2018-044747

PATIENT
  Age: 35 Year
  Sex: Female

DRUGS (8)
  1. FYCOMPA [Suspect]
     Active Substance: PERAMPANEL
     Route: 048
     Dates: start: 2018
  2. TOPAMAX [Concomitant]
     Active Substance: TOPIRAMATE
  3. FYCOMPA [Suspect]
     Active Substance: PERAMPANEL
     Route: 048
  4. FYCOMPA [Suspect]
     Active Substance: PERAMPANEL
     Indication: GENERALISED TONIC-CLONIC SEIZURE
     Route: 048
     Dates: start: 20180727, end: 201808
  5. FYCOMPA [Suspect]
     Active Substance: PERAMPANEL
     Route: 048
     Dates: start: 201808, end: 2018
  6. FYCOMPA [Suspect]
     Active Substance: PERAMPANEL
     Route: 048
     Dates: end: 201902
  7. KEPPRA [Concomitant]
     Active Substance: LEVETIRACETAM
  8. RIVOTRIL [Concomitant]
     Active Substance: CLONAZEPAM

REACTIONS (4)
  - Aggression [Recovering/Resolving]
  - Psychotic disorder [Recovering/Resolving]
  - Loss of consciousness [Unknown]
  - Paranoia [Recovering/Resolving]

NARRATIVE: CASE EVENT DATE: 2018
